FAERS Safety Report 6226674-0 (Version None)
Quarter: 2009Q2

REPORT INFORMATION
  Report Type: 
  Country: None (occurrence: None)
  Receive Date: 20090612
  Receipt Date: 20090603
  Transmission Date: 20091009
  Serious: Yes (Hospitalization)
  Sender: FDA-Public Use
  Company Number: JP-JNJFOC-20090405241

PATIENT
  Sex: Female
  Weight: 46 kg

DRUGS (2)
  1. REMICADE [Suspect]
     Route: 042
  2. REMICADE [Suspect]
     Indication: CROHN'S DISEASE
     Dosage: WEEKS GIVEN, 0, 2, 6 THEN EVERY EIGHT WEEKS THEREAFTER FOR 7 DOSAGES
     Route: 042

REACTIONS (2)
  - PULMONARY TUBERCULOSIS [None]
  - RETINAL HAEMORRHAGE [None]
